FAERS Safety Report 19856224 (Version 2)
Quarter: 2021Q4

REPORT INFORMATION
  Report Type: Spontaneous
  Country: US (occurrence: US)
  Receive Date: 20210920
  Receipt Date: 20211107
  Transmission Date: 20220303
  Serious: Yes (Death, Other)
  Sender: FDA-Public Use
  Company Number: US-TEVA-2021-US-1954507

PATIENT
  Sex: Male

DRUGS (1)
  1. GABAPENTIN [Interacting]
     Active Substance: GABAPENTIN
     Route: 065

REACTIONS (6)
  - Death [Fatal]
  - Coma [Unknown]
  - Overdose [Unknown]
  - Drug interaction [Unknown]
  - Dyspnoea [Unknown]
  - Euphoric mood [Unknown]
